FAERS Safety Report 12712771 (Version 4)
Quarter: 2017Q4

REPORT INFORMATION
  Report Type: Other
  Country: US (occurrence: US)
  Receive Date: 20160902
  Receipt Date: 20171229
  Transmission Date: 20180320
  Serious: Yes (Hospitalization, Disabling, Other)
  Sender: FDA-Public Use
  Company Number: US-SAOL THERAPEUTICS-2016SAO00572

PATIENT
  Age: 3 Year
  Sex: Female
  Weight: 16.78 kg

DRUGS (18)
  1. LIORESAL [Suspect]
     Active Substance: BACLOFEN
     Indication: BRAIN INJURY
     Dosage: 497 ?G, UNK
  2. LIORESAL [Suspect]
     Active Substance: BACLOFEN
     Indication: QUADRIPLEGIA
     Dosage: 134 ?G, UNK
  3. SINGULAIR [Concomitant]
     Active Substance: MONTELUKAST SODIUM
  4. ZYRTEC [Concomitant]
     Active Substance: CETIRIZINE HYDROCHLORIDE
  5. LIORESAL [Suspect]
     Active Substance: BACLOFEN
     Dosage: 96.1 ?G, \DAY
  6. ALBUTEROL. [Concomitant]
     Active Substance: ALBUTEROL
  7. CLARITIN [Concomitant]
     Active Substance: LORATADINE
  8. PULMICORT TURBUHALER [Concomitant]
     Active Substance: BUDESONIDE
  9. NEURONTIN [Concomitant]
     Active Substance: GABAPENTIN
  10. GAS DROPS [Concomitant]
  11. ZANTAC [Concomitant]
     Active Substance: RANITIDINE HYDROCHLORIDE
  12. MELATONIN [Concomitant]
     Active Substance: MELATONIN
  13. DIAZEPAM. [Concomitant]
     Active Substance: DIAZEPAM
  14. PROBIOTICS [Concomitant]
     Active Substance: PROBIOTICS NOS
  15. VITAMINS [Concomitant]
     Active Substance: VITAMINS
  16. BOTOX [Concomitant]
     Active Substance: ONABOTULINUMTOXINA
  17. LIORESAL [Suspect]
     Active Substance: BACLOFEN
     Dosage: 96 ?G, \DAY
  18. FLONASE [Concomitant]
     Active Substance: FLUTICASONE PROPIONATE

REACTIONS (10)
  - Muscle spasticity [Unknown]
  - Complication associated with device [Unknown]
  - Mobility decreased [Not Recovered/Not Resolved]
  - Muscle tightness [Not Recovered/Not Resolved]
  - Respiratory depression [Unknown]
  - Hypertonia [Not Recovered/Not Resolved]
  - Overdose [Unknown]
  - Medical device discomfort [Unknown]
  - Loss of personal independence in daily activities [Recovering/Resolving]
  - Apallic syndrome [Recovering/Resolving]

NARRATIVE: CASE EVENT DATE: 20140501
